FAERS Safety Report 13958041 (Version 3)
Quarter: 2018Q2

REPORT INFORMATION
  Report Type: Spontaneous
  Country: US (occurrence: US)
  Receive Date: 20170912
  Receipt Date: 20180424
  Transmission Date: 20180711
  Serious: Yes (Death, Hospitalization)
  Sender: FDA-Public Use
  Company Number: US-JNJFOC-20170900062

PATIENT
  Age: 38 Year
  Sex: Male

DRUGS (1)
  1. TYLENOL PM [Suspect]
     Active Substance: ACETAMINOPHEN\DIPHENHYDRAMINE
     Indication: PRODUCT USED FOR UNKNOWN INDICATION
     Dosage: 450 TABLETS
     Route: 048

REACTIONS (9)
  - Hypotension [Fatal]
  - International normalised ratio increased [Fatal]
  - Metabolic acidosis [Fatal]
  - Unresponsive to stimuli [Fatal]
  - Agitation [Fatal]
  - Blood glucose increased [Fatal]
  - Transaminases increased [Fatal]
  - Overdose [Fatal]
  - Spontaneous haemorrhage [Fatal]
